FAERS Safety Report 7780787-0 (Version None)
Quarter: 2011Q3

REPORT INFORMATION
  Report Type: 
  Country: None (occurrence: None)
  Receive Date: 20110927
  Receipt Date: 20110923
  Transmission Date: 20111222
  Serious: Yes (Hospitalization, Other)
  Sender: FDA-Public Use
  Company Number: US-PFIZER INC-2011227544

PATIENT
  Sex: Male

DRUGS (2)
  1. CELEBREX [Suspect]
     Indication: ARTHRITIS
     Dosage: 200 MG, 1X/DAY
     Route: 048
     Dates: start: 20100201, end: 20110901
  2. COUMADIN [Suspect]
     Indication: ATRIAL FIBRILLATION
     Dosage: 1.25 MG, EVERY OTHER DAY
     Route: 048
     Dates: end: 20110901

REACTIONS (1)
  - GASTROINTESTINAL HAEMORRHAGE [None]
